FAERS Safety Report 13739803 (Version 1)
Quarter: 2017Q3

REPORT INFORMATION
  Report Type: Spontaneous
  Country: None (occurrence: ES)
  Receive Date: 20170710
  Receipt Date: 20170710
  Transmission Date: 20171127
  Serious: Yes (Life-Threatening, Hospitalization)
  Sender: FDA-Public Use
  Company Number: CVBU1999ES00718

PATIENT
  Age: 80 Year
  Sex: Female

DRUGS (1)
  1. CARTEOLOL (NVO) [Suspect]
     Active Substance: CARTEOLOL HYDROCHLORIDE
     Dosage: 2 DRP, UNK
     Dates: start: 19971012, end: 19971013

REACTIONS (1)
  - Atrioventricular block complete [Recovered/Resolved]

NARRATIVE: CASE EVENT DATE: 19971013
